FAERS Safety Report 6121861-4 (Version None)
Quarter: 2009Q1

REPORT INFORMATION
  Report Type: 
  Country: None (occurrence: None)
  Receive Date: 20090317
  Receipt Date: 20090305
  Transmission Date: 20090719
  Serious: Yes (Hospitalization)
  Sender: FDA-Public Use
  Company Number: ES-PFIZER INC-2008084492

PATIENT

DRUGS (2)
  1. SUNITINIB MALATE [Suspect]
     Indication: BREAST CANCER
     Dosage: 37.5 MG, 1X/DAY
     Route: 048
     Dates: start: 20080819
  2. DOCETAXEL [Suspect]
     Indication: BREAST CANCER
     Dosage: 100 MG/M2, EVERY 3 WEEKS
     Dates: start: 20080818

REACTIONS (5)
  - MUCOSAL INFLAMMATION [None]
  - NEUROPATHY PERIPHERAL [None]
  - NEUTROPENIA [None]
  - PALMAR-PLANTAR ERYTHRODYSAESTHESIA SYNDROME [None]
  - SKIN TOXICITY [None]
